FAERS Safety Report 9695198 (Version 1)
Quarter: 2013Q4

REPORT INFORMATION
  Report Type: Spontaneous
  Country: CA (occurrence: CA)
  Receive Date: 20131119
  Receipt Date: 20131119
  Transmission Date: 20140711
  Serious: Yes (Other)
  Sender: FDA-Public Use
  Company Number: CA-ROCHE-1304140

PATIENT
  Age: 34 Year
  Sex: Female

DRUGS (10)
  1. XOLAIR [Suspect]
     Indication: ASTHMA
     Route: 058
     Dates: start: 20100525
  2. XOLAIR [Suspect]
     Route: 058
  3. PREDNISONE [Concomitant]
     Dosage: TAPERING DOSE
     Route: 065
  4. ZITHROMAX [Concomitant]
  5. UNIPHYL [Concomitant]
  6. SPIRIVA [Concomitant]
  7. SINGULAIR [Concomitant]
  8. NASACORT [Concomitant]
  9. VENTOLIN [Concomitant]
  10. SYMBICORT [Concomitant]

REACTIONS (10)
  - Labyrinthitis [Not Recovered/Not Resolved]
  - Dyspnoea [Unknown]
  - Nasal congestion [Unknown]
  - Productive cough [Unknown]
  - Rhinorrhoea [Unknown]
  - Sinusitis [Unknown]
  - Chest pain [Unknown]
  - Pain in extremity [Unknown]
  - Cough [Unknown]
  - Dizziness [Unknown]
